FAERS Safety Report 9145250 (Version 1)
Quarter: 2013Q1

REPORT INFORMATION
  Report Type: Spontaneous
  Country: US (occurrence: None)
  Receive Date: 20130226
  Receipt Date: 20130226
  Transmission Date: 20140127
  Serious: Yes (Life-Threatening, Hospitalization)
  Sender: FDA-Public Use
  Company Number: None

PATIENT
  Sex: Male
  Weight: 70 kg

DRUGS (1)
  1. KRYSTEXXA [Suspect]
     Indication: GOUTY TOPHUS
     Dosage: 8MG ONCE IV DRIP
     Route: 041
     Dates: start: 20130214, end: 20130214

REACTIONS (3)
  - Methaemoglobinaemia [None]
  - Haemolytic anaemia [None]
  - Renal tubular necrosis [None]
